FAERS Safety Report 4575100-6 (Version None)
Quarter: 2005Q1

REPORT INFORMATION
  Report Type: 
  Country: None (occurrence: None)
  Receive Date: 20050208
  Receipt Date: 20050128
  Transmission Date: 20050727
  Serious: Yes (Other)
  Sender: FDA-Public Use
  Company Number: AU-GLAXOSMITHKLINE-B0370092A

PATIENT
  Sex: Female

DRUGS (4)
  1. IMIGRAN [Suspect]
     Indication: MIGRAINE
     Dosage: 50MG AS REQUIRED
     Route: 048
  2. PROVERA [Concomitant]
     Indication: ILL-DEFINED DISORDER
     Dosage: 10MG PER DAY
     Route: 048
  3. FELDENE D [Concomitant]
     Indication: ILL-DEFINED DISORDER
  4. SOMAC [Concomitant]
     Indication: ILL-DEFINED DISORDER

REACTIONS (1)
  - SKIN CANCER [None]
